FAERS Safety Report 9585168 (Version 1)
Quarter: 2013Q4

REPORT INFORMATION
  Report Type: Spontaneous
  Country: US (occurrence: US)
  Receive Date: 20131002
  Receipt Date: 20131002
  Transmission Date: 20140711
  Serious: No
  Sender: FDA-Public Use
  Company Number: US-AMGEN-USASP2013062218

PATIENT
  Age: 83 Year
  Sex: Female

DRUGS (12)
  1. ENBREL [Suspect]
     Indication: RHEUMATOID ARTHRITIS
     Dosage: 25 MG, QWK
     Route: 058
     Dates: start: 20130708, end: 20130901
  2. XANAX [Concomitant]
     Dosage: 0.25 MG, UNK
  3. PLAQUENIL                          /00072602/ [Concomitant]
     Dosage: 200 MG, UNK
  4. PREDNISONE [Concomitant]
     Dosage: 5 MG, UNK
  5. SYSTANE [Concomitant]
     Dosage: 0.3-0.4 %, UNK
  6. EYE DROPS                          /00256502/ [Concomitant]
     Dosage: UNK
  7. PRAVASTATIN SODIUM [Concomitant]
     Dosage: 80 MG, UNK
  8. ASPIRIN [Concomitant]
     Dosage: 325 MG, UNK
  9. BYSTOLIC [Concomitant]
     Dosage: 5 MG, UNK
  10. CITRACAL PLUS WITH MAGNESIUM [Concomitant]
     Dosage: UNK
  11. OMEGA 3 FISH OIL                   /01334101/ [Concomitant]
     Dosage: UNK
  12. VITAMIN D3 [Concomitant]
     Dosage: 1000 UNIT SFGL, UNK

REACTIONS (3)
  - Headache [Unknown]
  - Nausea [Unknown]
  - Malaise [Unknown]
